FAERS Safety Report 7223105-9 (Version None)
Quarter: 2011Q1

REPORT INFORMATION
  Report Type: 
  Country: None (occurrence: None)
  Receive Date: 20110112
  Receipt Date: 20100125
  Transmission Date: 20110831
  Serious: No
  Sender: FDA-Public Use
  Company Number: US-ALLERGAN-1000682US

PATIENT
  Age: 68 Year
  Sex: Female

DRUGS (9)
  1. RESTASIS [Suspect]
     Indication: DRY EYE
     Dosage: 1 GTT, BID
     Route: 047
  2. VITAMIN D [Concomitant]
  3. SYNTHROID [Concomitant]
  4. NORVASC [Concomitant]
  5. FLUOROMETHOLONE [Concomitant]
     Indication: PRODUCT USED FOR UNKNOWN INDICATION
     Dosage: UNK
     Route: 047
     Dates: start: 20100113
  6. LIPITOR [Concomitant]
  7. FEXOFENADINE HCL [Concomitant]
  8. BONIVA [Concomitant]
     Dosage: 1 MONTHLY
  9. ASPIRIN [Concomitant]

REACTIONS (1)
  - EYE IRRITATION [None]
